FAERS Safety Report 20223204 (Version 1)
Quarter: 2021Q4

REPORT INFORMATION
  Report Type: Spontaneous
  Country: US (occurrence: None)
  Receive Date: 20211223
  Receipt Date: 20211223
  Transmission Date: 20220303
  Serious: Yes (Hospitalization)
  Sender: FDA-Public Use
  Company Number: None

PATIENT
  Sex: Female

DRUGS (2)
  1. XELODA [Suspect]
     Active Substance: CAPECITABINE
  2. TUKYSA [Concomitant]
     Active Substance: TUCATINIB
     Dates: start: 20210524

REACTIONS (1)
  - Diarrhoea [None]
